FAERS Safety Report 17339593 (Version 1)
Quarter: 2020Q1

REPORT INFORMATION
  Report Type: Spontaneous
  Country: GB (occurrence: GB)
  Receive Date: 20200129
  Receipt Date: 20200129
  Transmission Date: 20200409
  Serious: Yes (Life-Threatening, Hospitalization, Other)
  Sender: FDA-Public Use
  Company Number: GB-ACCORD-170362

PATIENT
  Age: 52 Year
  Sex: Male

DRUGS (13)
  1. CYCLOPHOSPHAMIDE/CYCLOPHOSPHAMIDE MONOHYDRATE [Suspect]
     Active Substance: CYCLOPHOSPHAMIDE
     Indication: PANCREATIC CARCINOMA
  2. VINCRISTINE [Concomitant]
     Active Substance: VINCRISTINE
     Indication: PANCREATIC CARCINOMA
  3. MEROPENEM/MEROPENEM TRIHYDRATE [Concomitant]
     Active Substance: MEROPENEM
     Indication: DEVICE RELATED INFECTION
     Route: 042
  4. GENTAMICIN/GENTAMICIN SULFATE [Concomitant]
     Active Substance: GENTAMICIN SULFATE
     Indication: CITROBACTER BACTERAEMIA
     Route: 042
  5. SALBUTAMOL/SALBUTAMOL SULFATE [Concomitant]
     Active Substance: ALBUTEROL
     Indication: ASTHMA
  6. PREDNISONE. [Suspect]
     Active Substance: PREDNISONE
     Indication: PANCREATIC CARCINOMA
     Dosage: HIGH DOSE
     Route: 048
  7. AMLODIPINE/AMLODIPINE BESILATE/AMLODIPINE MALEATE/AMLODIPINE MESILATE [Concomitant]
     Indication: HYPERTENSION
  8. ETOPOSIDE. [Suspect]
     Active Substance: ETOPOSIDE
     Indication: PANCREATIC CARCINOMA
  9. IFOSFAMIDE. [Concomitant]
     Active Substance: IFOSFAMIDE
     Indication: PANCREATIC CARCINOMA
  10. CARBOPLATIN. [Suspect]
     Active Substance: CARBOPLATIN
     Indication: PANCREATIC CARCINOMA
  11. DOXORUBICIN [Suspect]
     Active Substance: DOXORUBICIN
     Indication: PANCREATIC CARCINOMA
  12. PREDNISOLONE. [Suspect]
     Active Substance: PREDNISOLONE
     Indication: PANCREATIC CARCINOMA
  13. RITUXIMAB. [Suspect]
     Active Substance: RITUXIMAB
     Indication: PANCREATIC CARCINOMA

REACTIONS (2)
  - Drug ineffective [Unknown]
  - Off label use [Unknown]
